FAERS Safety Report 20081386 (Version 2)
Quarter: 2022Q1

REPORT INFORMATION
  Report Type: Report from Study
  Country: US (occurrence: US)
  Receive Date: 20211117
  Receipt Date: 20220213
  Transmission Date: 20220423
  Serious: Yes (Other)
  Sender: FDA-Public Use
  Company Number: US-ABBVIE-21K-163-4162532-00

PATIENT
  Sex: Female
  Weight: 92.616 kg

DRUGS (11)
  1. RINVOQ [Suspect]
     Active Substance: UPADACITINIB
     Indication: Rheumatoid arthritis
     Route: 048
     Dates: start: 2019, end: 2021
  2. HUMIRA [Suspect]
     Active Substance: ADALIMUMAB
     Indication: Rheumatoid arthritis
     Dosage: CF
     Route: 058
     Dates: start: 202103
  3. PFIZER-BIONTECH COVID-19 VACCINE [Concomitant]
     Active Substance: TOZINAMERAN
     Indication: COVID-19 immunisation
     Route: 030
     Dates: start: 20210219, end: 20210219
  4. PFIZER-BIONTECH COVID-19 VACCINE [Concomitant]
     Active Substance: TOZINAMERAN
     Route: 030
     Dates: start: 20210310, end: 20210310
  5. PFIZER-BIONTECH COVID-19 VACCINE [Concomitant]
     Active Substance: TOZINAMERAN
     Route: 030
     Dates: start: 20210825, end: 20210825
  6. ASPIRIN [Concomitant]
     Active Substance: ASPIRIN
     Indication: Blood pressure measurement
  7. JANUVIA [Concomitant]
     Active Substance: SITAGLIPTIN PHOSPHATE
     Indication: Diabetes mellitus
  8. SIMVASTATIN [Concomitant]
     Active Substance: SIMVASTATIN
     Indication: Product used for unknown indication
  9. PROCARDIA [Concomitant]
     Active Substance: NIFEDIPINE
     Indication: Product used for unknown indication
  10. PREDNISONE [Concomitant]
     Active Substance: PREDNISONE
     Indication: Product used for unknown indication
  11. NORCO [Concomitant]
     Active Substance: ACETAMINOPHEN\HYDROCODONE BITARTRATE
     Indication: Product used for unknown indication

REACTIONS (9)
  - Intervertebral disc degeneration [Recovering/Resolving]
  - Red blood cell sedimentation rate abnormal [Unknown]
  - Musculoskeletal disorder [Recovering/Resolving]
  - Nodule [Recovered/Resolved]
  - Arthritis [Recovered/Resolved]
  - Discomfort [Recovering/Resolving]
  - Pain in extremity [Recovered/Resolved]
  - Pain [Recovering/Resolving]
  - Therapeutic product effect decreased [Recovered/Resolved]

NARRATIVE: CASE EVENT DATE: 20200101
